FAERS Safety Report 5144721-4 (Version None)
Quarter: 2006Q4

REPORT INFORMATION
  Report Type: 
  Country: None (occurrence: None)
  Receive Date: 20061031
  Receipt Date: 20061016
  Transmission Date: 20070319
  Serious: Yes (Hospitalization)
  Sender: FDA-Public Use
  Company Number: US200610002799

PATIENT
  Age: 15 Year
  Sex: Female

DRUGS (1)
  1. STRATTERA [Suspect]
     Indication: ATTENTION DEFICIT/HYPERACTIVITY DISORDER
     Dosage: 60 MG, DAILY (1/D)
     Dates: start: 20040401, end: 20041201

REACTIONS (8)
  - AGGRESSION [None]
  - AGITATION [None]
  - ANGER [None]
  - DRUG INTERACTION [None]
  - HOMICIDAL IDEATION [None]
  - PHYSICAL ASSAULT [None]
  - REACTION TO AZO-DYES [None]
  - TREATMENT NONCOMPLIANCE [None]
